FAERS Safety Report 4541016-4 (Version None)
Quarter: 2004Q4

REPORT INFORMATION
  Report Type: 
  Country: None (occurrence: None)
  Receive Date: 20041229
  Receipt Date: 20041220
  Transmission Date: 20050328
  Serious: Yes (Disabling)
  Sender: FDA-Public Use
  Company Number: DE-AMGEN-UK104334

PATIENT
  Age: 65 Year
  Sex: Female

DRUGS (2)
  1. KINERET [Suspect]
     Indication: RHEUMATOID ARTHRITIS
     Route: 065
     Dates: start: 20031101
  2. PREDNISOLONE [Concomitant]
     Route: 048

REACTIONS (2)
  - IMPAIRED HEALING [None]
  - SKIN ULCER [None]
